FAERS Safety Report 13273883 (Version 6)
Quarter: 2017Q3

REPORT INFORMATION
  Report Type: Report from Study
  Country: CO (occurrence: CO)
  Receive Date: 20170227
  Receipt Date: 20170808
  Transmission Date: 20171127
  Serious: Yes (Other)
  Sender: FDA-Public Use
  Company Number: PHHY2017CO028554

PATIENT
  Age: 31 Year
  Sex: Male
  Weight: 82 kg

DRUGS (1)
  1. SIGNIFOR LAR [Suspect]
     Active Substance: PASIREOTIDE
     Indication: ACROMEGALY
     Dosage: 40 MG, QMO
     Route: 030
     Dates: start: 20160615, end: 20170505

REACTIONS (15)
  - Neoplasm [Unknown]
  - Inflammation [Unknown]
  - Dizziness [Unknown]
  - Eye colour change [Unknown]
  - Psychiatric symptom [Unknown]
  - Vomiting [Unknown]
  - Paraesthesia [Unknown]
  - Drug ineffective [Unknown]
  - Lacrimation increased [Unknown]
  - Hypoaesthesia [Recovered/Resolved]
  - Abdominal pain upper [Unknown]
  - Photophobia [Unknown]
  - Headache [Recovered/Resolved]
  - Tumour pain [Unknown]
  - Diarrhoea [Not Recovered/Not Resolved]

NARRATIVE: CASE EVENT DATE: 20160615
